FAERS Safety Report 23183871 (Version 1)
Quarter: 2023Q4

REPORT INFORMATION
  Report Type: Spontaneous
  Country: US (occurrence: US)
  Receive Date: 20231114
  Receipt Date: 20231114
  Transmission Date: 20240110
  Serious: No
  Sender: FDA-Public Use
  Company Number: US-ARIS GLOBAL-38236

PATIENT
  Age: 42 Year
  Sex: Female

DRUGS (8)
  1. PHOTREXA [Suspect]
     Active Substance: RIBOFLAVIN 5^-PHOSPHATE SODIUM
     Indication: Keratoconus
     Dosage: RIGHT EYE
     Route: 047
     Dates: start: 20230420, end: 20230420
  2. PHOTREXA VISCOUS [Suspect]
     Active Substance: RIBOFLAVIN 5^-PHOSPHATE SODIUM
     Indication: Keratoconus
     Dosage: RIGHT EYE
     Route: 047
     Dates: start: 20230420, end: 20230420
  3. DEVICE [Suspect]
     Active Substance: DEVICE
     Indication: Product used for unknown indication
     Dates: start: 20230420, end: 20230420
  4. LEXAPRO [Concomitant]
     Active Substance: ESCITALOPRAM OXALATE
     Indication: Product used for unknown indication
  5. FUROSEMIDE [Concomitant]
     Active Substance: FUROSEMIDE
     Indication: Product used for unknown indication
  6. ALBUTEROL [Concomitant]
     Active Substance: ALBUTEROL
     Indication: Product used for unknown indication
  7. MOXIFLOXACIN [Concomitant]
     Active Substance: MOXIFLOXACIN
     Indication: Product used for unknown indication
     Dates: start: 20230420
  8. PREDNISOLONE [Concomitant]
     Active Substance: PREDNISOLONE
     Indication: Product used for unknown indication
     Dates: start: 20230420

REACTIONS (2)
  - Drug ineffective [Unknown]
  - Therapy cessation [Unknown]

NARRATIVE: CASE EVENT DATE: 20230420
